FAERS Safety Report 4459575-9 (Version None)
Quarter: 2004Q3

REPORT INFORMATION
  Report Type: 
  Country: None (occurrence: None)
  Receive Date: 20040910
  Receipt Date: 20040524
  Transmission Date: 20050211
  Serious: Yes (Hospitalization)
  Sender: FDA-Public Use
  Company Number: 2004215321US

PATIENT
  Age: 50 Year
  Sex: Female

DRUGS (4)
  1. BEXTRA [Suspect]
     Indication: NECK PAIN
     Dates: start: 20040301, end: 20040101
  2. NEURONTIN [Suspect]
     Dosage: 100 MG, QD
     Dates: start: 20040101, end: 20040101
  3. DEPAKOTE [Concomitant]
  4. KLONOPIN [Concomitant]

REACTIONS (2)
  - HYPERSENSITIVITY [None]
  - RASH GENERALISED [None]
